FAERS Safety Report 25622976 (Version 1)
Quarter: 2025Q3

REPORT INFORMATION
  Report Type: Spontaneous
  Country: US (occurrence: US)
  Receive Date: 20250730
  Receipt Date: 20250730
  Transmission Date: 20251021
  Serious: No
  Sender: GALPHARM INTERNATIONAL
  Company Number: US-PERRIGO-24US010822

PATIENT
  Sex: Female
  Weight: 58.957 kg

DRUGS (3)
  1. LORATADINE [Suspect]
     Active Substance: LORATADINE
     Indication: Throat irritation
     Dosage: 10 MG, QD
     Route: 048
     Dates: start: 2024, end: 2024
  2. LORATADINE [Suspect]
     Active Substance: LORATADINE
     Indication: Productive cough
  3. LORATADINE [Suspect]
     Active Substance: LORATADINE
     Indication: Sneezing

REACTIONS (2)
  - Drug ineffective [Unknown]
  - Product use in unapproved indication [Unknown]

NARRATIVE: CASE EVENT DATE: 20240101
